FAERS Safety Report 5430376-8 (Version None)
Quarter: 2007Q3

REPORT INFORMATION
  Report Type: 
  Country: None (occurrence: None)
  Receive Date: 20070830
  Receipt Date: 20070821
  Transmission Date: 20080115
  Serious: Yes (Other)
  Sender: FDA-Public Use
  Company Number: US-JNJFOC-20070804680

PATIENT
  Sex: Male
  Weight: 77.11 kg

DRUGS (5)
  1. FENTANYL TRANSDERMAL SYSTEM [Suspect]
     Indication: PAIN
     Route: 062
  2. LORAZEPAM [Concomitant]
     Indication: AGITATION
     Route: 048
  3. PROTONIX [Concomitant]
     Indication: STOMACH DISCOMFORT
     Route: 048
  4. HYDROCODONE BITARTRATE [Concomitant]
     Indication: PAIN
     Route: 048
  5. CARAFATE [Concomitant]
     Indication: STOMACH DISCOMFORT
     Route: 048

REACTIONS (3)
  - APPLICATION SITE ERYTHEMA [None]
  - BIPOLAR DISORDER [None]
  - WRONG TECHNIQUE IN DRUG USAGE PROCESS [None]
